FAERS Safety Report 6259492-8 (Version None)
Quarter: 2009Q3

REPORT INFORMATION
  Report Type: 
  Country: None (occurrence: None)
  Receive Date: 20090708
  Receipt Date: 20090630
  Transmission Date: 20100115
  Serious: Yes (Hospitalization)
  Sender: FDA-Public Use
  Company Number: SE-BIOGENIDEC-2009BI020102

PATIENT
  Sex: Female

DRUGS (4)
  1. AVONEX [Suspect]
     Indication: MULTIPLE SCLEROSIS
     Route: 030
     Dates: start: 20070401
  2. MADOPARK [Concomitant]
     Indication: DRUG USE FOR UNKNOWN INDICATION
  3. VITAMINS + MINERALS [Concomitant]
     Indication: DRUG USE FOR UNKNOWN INDICATION
  4. LORATADINE [Concomitant]
     Indication: DRUG USE FOR UNKNOWN INDICATION

REACTIONS (2)
  - COLITIS ISCHAEMIC [None]
  - LARGE INTESTINE PERFORATION [None]
